APPROVED DRUG PRODUCT: LANSOPRAZOLE
Active Ingredient: LANSOPRAZOLE
Strength: 30MG
Dosage Form/Route: CAPSULE, DELAYED REL PELLETS;ORAL
Application: A202366 | Product #002 | TE Code: AB
Applicant: ZYDUS HEALTHCARE USA LLC
Approved: Aug 19, 2013 | RLD: No | RS: No | Type: RX